FAERS Safety Report 5905956 (Version 2)
Quarter: 2016Q1

REPORT INFORMATION
  Report Type: Report from Study
  Country: MX (occurrence: MX)
  Receive Date: 20040225
  Receipt Date: 20160209
  Transmission Date: 20160526
  Serious: Yes (Other)
  Sender: FDA-Public Use
  Company Number: MX-BRISTOL-MYERS SQUIBB COMPANY-12479838

PATIENT
  Age: 43 Year
  Sex: Female

DRUGS (4)
  1. MURAGLITAZAR. [Suspect]
     Active Substance: MURAGLITAZAR
     Indication: TYPE 2 DIABETES MELLITUS
     Dosage: 2.5 MG, UNK
     Route: 048
     Dates: start: 20031113, end: 20040112
  2. RUBELLA VIRUS VACCINE LIVE NOS [Suspect]
     Active Substance: RUBELLA VIRUS STRAIN WISTAR RA 27/3 LIVE ANTIGEN
     Indication: PRODUCT USED FOR UNKNOWN INDICATION
     Dosage: UNK
     Route: 065
     Dates: start: 20031120, end: 20031120
  3. METFORMIN HYDROCHLORIDE. [Suspect]
     Active Substance: METFORMIN HYDROCHLORIDE
     Indication: TYPE 2 DIABETES MELLITUS
     Dosage: 2000 MG, QD
     Route: 048
     Dates: start: 200307, end: 20040112
  4. FLUCONAZOLE. [Suspect]
     Active Substance: FLUCONAZOLE
     Indication: PRODUCT USED FOR UNKNOWN INDICATION
     Dosage: 200 MG, QD
     Route: 048
     Dates: start: 20031222, end: 20031224

REACTIONS (3)
  - Pregnancy on contraceptive [Unknown]
  - Blighted ovum [Unknown]
  - Abortion induced [Unknown]

NARRATIVE: CASE EVENT DATE: 20040205
